FAERS Safety Report 11827303 (Version 1)
Quarter: 2015Q4

REPORT INFORMATION
  Report Type: Report from Study
  Country: NZ (occurrence: NZ)
  Receive Date: 20151211
  Receipt Date: 20151211
  Transmission Date: 20160305
  Serious: Yes (Hospitalization, Other)
  Sender: FDA-Public Use
  Company Number: NZ-ABBVIE-11P-118-0864193-02

PATIENT
  Age: 38 Year
  Sex: Female
  Weight: 56 kg

DRUGS (30)
  1. WARFARIN [Concomitant]
     Active Substance: WARFARIN
     Indication: ANTICOAGULANT THERAPY
     Dosage: 4 TO 5 MG DAILY
     Dates: start: 20110501
  2. ENOXAPARIN [Concomitant]
     Active Substance: ENOXAPARIN
     Dates: start: 20110502
  3. CYCLIZINE [Concomitant]
     Active Substance: CYCLIZINE
     Indication: NAUSEA
     Dosage: 25-50 MG AS NEEDED
     Dates: start: 2003
  4. LOPERAMIDE [Concomitant]
     Active Substance: LOPERAMIDE
     Indication: FAECAL VOLUME INCREASED
     Dosage: 4 TO 4 HOURLY AS NEEDED
     Dates: start: 2004
  5. LOPERAMIDE [Concomitant]
     Active Substance: LOPERAMIDE
     Indication: SHORT-BOWEL SYNDROME
  6. METHADONE [Concomitant]
     Active Substance: METHADONE HYDROCHLORIDE
  7. PANADOL [Concomitant]
     Active Substance: ACETAMINOPHEN
     Indication: ABDOMINAL PAIN
     Dates: start: 200409
  8. PEDIALYTE [Concomitant]
     Active Substance: POTASSIUM CITRATE\SODIUM CITRATE\ZINC
     Indication: FLUID IMBALANCE
     Dosage: 500-1000 ML OVER 24 HOURS
     Dates: start: 200911, end: 20100311
  9. SCOPADERM TTS [Concomitant]
     Indication: NAUSEA
     Dates: start: 20091012
  10. ENERLYTE [Concomitant]
     Indication: PROPHYLAXIS AGAINST DEHYDRATION
     Dates: start: 20100310
  11. CENTRUM [Concomitant]
     Active Substance: VITAMINS
     Indication: NUTRITIONAL SUPPLEMENTATION
     Dates: start: 200911
  12. METHADONE [Concomitant]
     Active Substance: METHADONE HYDROCHLORIDE
  13. METHADONE [Concomitant]
     Active Substance: METHADONE HYDROCHLORIDE
     Dates: start: 201001
  14. FLUOXETINE [Concomitant]
     Active Substance: FLUOXETINE HYDROCHLORIDE
     Indication: ANXIETY
  15. ONDANSETRON [Concomitant]
     Active Substance: ONDANSETRON
     Indication: NAUSEA
     Dosage: 1 TO 2
     Dates: start: 20091012, end: 20100615
  16. METHADONE [Concomitant]
     Active Substance: METHADONE HYDROCHLORIDE
     Indication: ABDOMINAL PAIN
     Dates: start: 201001, end: 20101209
  17. METHADONE [Concomitant]
     Active Substance: METHADONE HYDROCHLORIDE
     Dates: start: 20111009
  18. METHADONE [Concomitant]
     Active Substance: METHADONE HYDROCHLORIDE
     Dates: start: 201001
  19. FLUOXETINE [Concomitant]
     Active Substance: FLUOXETINE HYDROCHLORIDE
     Indication: DEPRESSION
     Dates: start: 20090912
  20. OMEPRAZOLE. [Concomitant]
     Active Substance: OMEPRAZOLE
     Indication: PROPHYLAXIS AGAINST GASTROINTESTINAL ULCER
     Dates: start: 200909
  21. ONDANSETRON [Concomitant]
     Active Substance: ONDANSETRON
     Indication: VOMITING
     Dosage: 8 HOURLY AS NEEDED
     Dates: start: 20100615
  22. SCOPADERM TTS [Concomitant]
     Indication: VOMITING
  23. ENOXAPARIN [Concomitant]
     Active Substance: ENOXAPARIN
     Indication: ANTICOAGULANT THERAPY
     Dates: start: 20110501, end: 20110501
  24. HUMIRA [Suspect]
     Active Substance: ADALIMUMAB
     Indication: CROHN^S DISEASE
     Route: 058
     Dates: start: 20091009
  25. PEDIALYTE [Concomitant]
     Active Substance: POTASSIUM CITRATE\SODIUM CITRATE\ZINC
     Indication: NUTRITIONAL SUPPLEMENTATION
  26. RESOURCE STANDARD [Concomitant]
     Indication: NUTRITIONAL SUPPLEMENTATION
     Dosage: 2 TO 3 TIMES DAILY
     Dates: start: 200703
  27. CHOLECALCIFEROL [Concomitant]
     Active Substance: CHOLECALCIFEROL
     Indication: VITAMIN D DEFICIENCY
     Dosage: MONDAY
     Dates: start: 200911
  28. CHOLECALCIFEROL [Concomitant]
     Active Substance: CHOLECALCIFEROL
     Indication: PROPHYLAXIS
  29. ETHINYLESTRADIOL AND LEVONORGESTREL [Concomitant]
     Indication: ORAL CONTRACEPTION
  30. OXYCODONE [Concomitant]
     Active Substance: OXYCODONE
     Indication: ABDOMINAL PAIN
     Dosage: 10-20 MG PER DAY
     Dates: start: 200907

REACTIONS (2)
  - Renal impairment [Recovered/Resolved]
  - Calculus urinary [Recovered/Resolved]

NARRATIVE: CASE EVENT DATE: 20110906
